FAERS Safety Report 8389777-0 (Version None)
Quarter: 2012Q2

REPORT INFORMATION
  Report Type: 
  Country: None (occurrence: None)
  Receive Date: 20120529
  Receipt Date: 20120523
  Transmission Date: 20120825
  Serious: Yes (Hospitalization, Other)
  Sender: FDA-Public Use
  Company Number: PHHY2012MX039160

PATIENT
  Sex: Female

DRUGS (6)
  1. EXELON [Suspect]
     Indication: DEMENTIA ALZHEIMER'S TYPE
     Dosage: 4.6 MG/24 HOURS
     Route: 062
     Dates: start: 20110501
  2. MEMANTINE HYDROCHLORIDE [Concomitant]
     Indication: NERVOUS SYSTEM DISORDER
     Dosage: 1 TABLET PER DAY
     Dates: start: 20050501
  3. OMEPRAZOLE [Concomitant]
     Indication: GASTRITIS
     Dosage: 2  TABLETS PER DAY
     Dates: start: 20120501
  4. EXELON [Suspect]
     Dosage: 9.5 MG/24 HOURS
     Route: 062
     Dates: start: 20110701
  5. SERMION [Concomitant]
     Indication: NERVOUS SYSTEM DISORDER
     Dosage: 4 TABLETS PER DAY
  6. ASCOR [Suspect]
     Indication: HYPOTENSION
     Dosage: 20 DROPS PER DAY
     Dates: start: 20050501

REACTIONS (2)
  - INTESTINAL OBSTRUCTION [None]
  - GASTROINTESTINAL HYPOMOTILITY [None]
